FAERS Safety Report 24968361 (Version 1)
Quarter: 2025Q1

REPORT INFORMATION
  Report Type: Spontaneous
  Country: HU (occurrence: HU)
  Receive Date: 20250214
  Receipt Date: 20250214
  Transmission Date: 20250409
  Serious: Yes (Life-Threatening)
  Sender: ROCHE
  Company Number: HU-ROCHE-10000199254

PATIENT
  Sex: Male

DRUGS (1)
  1. AVASTIN [Suspect]
     Active Substance: BEVACIZUMAB
     Indication: Product used for unknown indication
     Route: 065

REACTIONS (11)
  - Vomiting [Unknown]
  - Headache [Unknown]
  - Dyspnoea [Unknown]
  - Respiratory rate increased [Unknown]
  - Pyrexia [Unknown]
  - Balance disorder [Unknown]
  - Apathy [Unknown]
  - Mood swings [Unknown]
  - Decreased appetite [Unknown]
  - Taste disorder [Unknown]
  - Confusional state [Unknown]
